FAERS Safety Report 8877642 (Version 1)
Quarter: 2012Q4

REPORT INFORMATION
  Report Type: 
  Country: US (occurrence: US)
  Receive Date: 20121024
  Receipt Date: 20121024
  Transmission Date: 20130627
  Serious: Yes (Other)
  Sender: FDA-Public Use
  Company Number: PHHY2011US51746

PATIENT
  Sex: Female

DRUGS (5)
  1. RECLAST [Suspect]
     Indication: OSTEOPOROSIS
     Route: 042
     Dates: start: 20101212
  2. RECLAST [Suspect]
     Route: 042
     Dates: start: 201112
  3. ALENDRONATE SODIUM [Suspect]
     Dosage: 70 mg 1x day
  4. VITAMINS [Concomitant]
  5. COUMADIN ^BOOTS^ [Concomitant]
     Dosage: 1 mg, UNK

REACTIONS (8)
  - Lymphoma [Unknown]
  - Weight decreased [Unknown]
  - Arthralgia [Unknown]
  - Pain [Unknown]
  - Pain in extremity [Unknown]
  - Decreased appetite [Unknown]
  - Malaise [Unknown]
  - Pyrexia [Unknown]
